FAERS Safety Report 10166464 (Version 2)
Quarter: 2014Q2

REPORT INFORMATION
  Report Type: Spontaneous
  Country: US (occurrence: US)
  Receive Date: 20140512
  Receipt Date: 20140513
  Transmission Date: 20141212
  Serious: No
  Sender: FDA-Public Use
  Company Number: US-009507513-1405USA003410

PATIENT
  Age: 61 Year
  Sex: Female

DRUGS (6)
  1. PROVENTIL [Suspect]
     Indication: CHRONIC OBSTRUCTIVE PULMONARY DISEASE
     Dosage: 2 PUFFS 4 TIMES DAILY, THERAPY ROUTE INHALATION
     Dates: start: 2012
  2. TIMONACIC [Concomitant]
  3. SYMBICORT [Concomitant]
  4. SPIRIVA [Concomitant]
  5. ALBUTEROL [Concomitant]
  6. [THERAPY UNSPECIFIED] [Concomitant]
     Dosage: NEBULIZER MACHINE WITH UNSPECIFIED MEDICATION 6 TIMES A DAY, WHICH IS TWICE MORE THAN ON NORMAL DAY

REACTIONS (3)
  - Dyspnoea [Not Recovered/Not Resolved]
  - Headache [Not Recovered/Not Resolved]
  - Drug dose omission [Unknown]
